FAERS Safety Report 9523971 (Version 1)
Quarter: 2013Q1

REPORT INFORMATION
  Report Type: Spontaneous
  Country: US (occurrence: None)
  Receive Date: 20130305
  Receipt Date: 20130305
  Transmission Date: 20140127
  Serious: Yes (Hospitalization)
  Sender: FDA-Public Use
  Company Number: 163-21880-12063723

PATIENT
  Age: 39 Year
  Sex: Male

DRUGS (9)
  1. REVLIMID [Suspect]
     Indication: PLASMA CELL MYELOMA
     Route: 048
     Dates: start: 20120612
  2. PROMETHAZINE HCL (PROMETHAZINE HYDROCHLORIDE) [Concomitant]
  3. VELCADE [Concomitant]
  4. DEXAMETHASONE (DEXAMETHASONE) [Concomitant]
  5. CARAFATE (SUCRALFATE) [Concomitant]
  6. LEVEMIR (FLEXPEN (INSULIN DETEMIR) [Concomitant]
  7. ALTACE (RAMIPRIL) [Concomitant]
  8. PLAVIX (CLOPIDOGREL SULFATE) [Concomitant]
  9. NOVOLOG MIX [Concomitant]

REACTIONS (2)
  - Vomiting [None]
  - Blood glucose increased [None]
